FAERS Safety Report 19767724 (Version 2)
Quarter: 2021Q3

REPORT INFORMATION
  Report Type: Spontaneous
  Country: US (occurrence: US)
  Receive Date: 20210831
  Receipt Date: 20210903
  Transmission Date: 20211014
  Serious: No
  Sender: FDA-Public Use
  Company Number: US-BAYER-2021-201089

PATIENT
  Age: 70 Year
  Sex: Female
  Weight: 54.88 kg

DRUGS (1)
  1. MIRALAX [Suspect]
     Active Substance: POLYETHYLENE GLYCOL 3350
     Dosage: UNK

REACTIONS (2)
  - Vomiting [None]
  - Drug hypersensitivity [None]

NARRATIVE: CASE EVENT DATE: 2021
